FAERS Safety Report 13595709 (Version 2)
Quarter: 2017Q3

REPORT INFORMATION
  Report Type: Spontaneous
  Country: US (occurrence: US)
  Receive Date: 20170531
  Receipt Date: 20170725
  Transmission Date: 20171127
  Serious: No
  Sender: FDA-Public Use
  Company Number: US-JNJFOC-20170428775

PATIENT
  Age: 76 Year
  Sex: Female
  Weight: 53.07 kg

DRUGS (6)
  1. TYLENOL EXTRA STRENGTH [Suspect]
     Active Substance: ACETAMINOPHEN
     Indication: HEADACHE
     Dosage: WHEN NEEDED, BEFORE BEDTIME
     Route: 048
     Dates: start: 201704
  2. TYLENOL EXTRA STRENGTH [Suspect]
     Active Substance: ACETAMINOPHEN
     Indication: FACIAL PAIN
     Dosage: WHEN NEEDED, BEFORE BEDTIME
     Route: 048
     Dates: start: 201704
  3. FOSAMAX [Concomitant]
     Active Substance: ALENDRONATE SODIUM
     Indication: OSTEOPOROSIS
     Dosage: 1 PILL WHEN NEEDED SINCE 2 YEARS
     Route: 065
  4. VITAMIN D [Concomitant]
     Active Substance: CHOLECALCIFEROL
     Indication: NUTRITIONAL SUPPLEMENTATION
     Dosage: 2 YEARS
     Route: 065
  5. TYLENOL EXTRA STRENGTH [Suspect]
     Active Substance: ACETAMINOPHEN
     Indication: PYREXIA
     Dosage: WHEN NEEDED, BEFORE BEDTIME
     Route: 048
     Dates: start: 201704
  6. SODIUM [Concomitant]
     Active Substance: SODIUM
     Indication: ROSACEA
     Dosage: WHEN NEEDED SINCE 2 YEARS
     Route: 065

REACTIONS (4)
  - Feeling abnormal [Recovered/Resolved]
  - Poor quality sleep [Recovered/Resolved]
  - Wrong technique in product usage process [Unknown]
  - Cold sweat [Recovered/Resolved]

NARRATIVE: CASE EVENT DATE: 201704
